FAERS Safety Report 19209323 (Version 2)
Quarter: 2021Q3

REPORT INFORMATION
  Report Type: Spontaneous
  Country: US (occurrence: US)
  Receive Date: 20210503
  Receipt Date: 20210715
  Transmission Date: 20211014
  Serious: No
  Sender: FDA-Public Use
  Company Number: US-BEH-2021131095

PATIENT
  Age: 30 Year
  Sex: Male

DRUGS (1)
  1. HIZENTRA [Suspect]
     Active Substance: HUMAN IMMUNOGLOBULIN G
     Indication: IMMUNODEFICIENCY COMMON VARIABLE
     Dosage: 14 GRAMS (4 GRAMS AND 10 GRAMS), QOW
     Route: 058
     Dates: start: 20200929

REACTIONS (5)
  - Inappropriate schedule of product administration [Unknown]
  - Injection site reaction [Unknown]
  - Recalled product administered [Unknown]
  - Infusion site pain [Unknown]
  - No adverse event [Unknown]

NARRATIVE: CASE EVENT DATE: 202104
